FAERS Safety Report 19260227 (Version 2)
Quarter: 2021Q2

REPORT INFORMATION
  Report Type: Report from Study
  Country: CO (occurrence: CO)
  Receive Date: 20210514
  Receipt Date: 20210622
  Transmission Date: 20210717
  Serious: Yes (Death, Other)
  Sender: FDA-Public Use
  Company Number: NVSC2021CO108196

PATIENT
  Age: 57 Year
  Sex: Male
  Weight: 44 kg

DRUGS (4)
  1. INSULIN [Concomitant]
     Active Substance: INSULIN NOS
     Indication: DIABETES MELLITUS
     Dosage: UNK
     Route: 065
  2. METFORMIN [Suspect]
     Active Substance: METFORMIN HYDROCHLORIDE
     Indication: DIABETES MELLITUS
     Dosage: UNK (10 YEARS AGO)
     Route: 048
  3. VOTRIENT [Suspect]
     Active Substance: PAZOPANIB HYDROCHLORIDE
     Indication: SOFT TISSUE SARCOMA
     Dosage: 1200 MG
     Route: 048
     Dates: start: 202012
  4. VOTRIENT [Suspect]
     Active Substance: PAZOPANIB HYDROCHLORIDE
     Dosage: 800 MG
     Route: 048

REACTIONS (6)
  - Malignant neoplasm progression [Unknown]
  - Product dose omission issue [Unknown]
  - Cardiac arrest [Fatal]
  - Soft tissue sarcoma [Unknown]
  - Metastases to lung [Unknown]
  - Choking sensation [Unknown]

NARRATIVE: CASE EVENT DATE: 20210501
